FAERS Safety Report 8012838-2 (Version None)
Quarter: 2011Q4

REPORT INFORMATION
  Report Type: 
  Country: None (occurrence: None)
  Receive Date: 20111229
  Receipt Date: 20111220
  Transmission Date: 20120403
  Serious: Yes (Other)
  Sender: FDA-Public Use
  Company Number: US-JNJFOC-20111209318

PATIENT

DRUGS (2)
  1. REMICADE [Suspect]
     Route: 042
     Dates: start: 20100806
  2. REMICADE [Suspect]
     Indication: PRODUCT USED FOR UNKNOWN INDICATION
     Route: 042
     Dates: start: 20110713

REACTIONS (3)
  - INFUSION RELATED REACTION [None]
  - ANAPHYLACTIC REACTION [None]
  - INFUSION SITE REACTION [None]
